FAERS Safety Report 8088712-2 (Version None)
Quarter: 2012Q1

REPORT INFORMATION
  Report Type: 
  Country: None (occurrence: None)
  Receive Date: 20120128
  Receipt Date: 20110413
  Transmission Date: 20120608
  Serious: No
  Sender: FDA-Public Use
  Company Number: US-ABBOTT-11P-163-0718687-00

PATIENT
  Age: 57 Year
  Sex: Female

DRUGS (11)
  1. SYNTHROID [Concomitant]
     Indication: PRODUCT USED FOR UNKNOWN INDICATION
     Dates: start: 19840101
  2. ALBUTEROL [Concomitant]
     Indication: ASTHMA
     Dosage: PRN
  3. SYMBICORT [Concomitant]
     Indication: ASTHMA
     Dosage: PRN
  4. HUMIRA [Suspect]
     Indication: RHEUMATOID ARTHRITIS
     Dates: start: 20110120
  5. METHOTREXATE [Concomitant]
     Indication: PRODUCT USED FOR UNKNOWN INDICATION
     Dosage: 2.5MG FOUR TABS WEEKLY
  6. NEURONTIN [Concomitant]
     Indication: PRODUCT USED FOR UNKNOWN INDICATION
     Dosage: 300MG DAILY
  7. AROMASIN [Concomitant]
     Indication: BREAST CANCER FEMALE
     Dosage: 25MG DAILY
  8. CYMBALTA [Concomitant]
     Indication: PRODUCT USED FOR UNKNOWN INDICATION
     Dosage: 60MG DAILY
     Dates: start: 20100101
  9. FOLIC ACID [Concomitant]
     Indication: PRODUCT USED FOR UNKNOWN INDICATION
  10. TRAMADOL HCL [Concomitant]
     Indication: PAIN
  11. ZOLPIDEM [Concomitant]
     Indication: INSOMNIA
     Dosage: PRN

REACTIONS (2)
  - CELLULITIS [None]
  - FURUNCLE [None]
